FAERS Safety Report 4443588-7 (Version None)
Quarter: 2004Q3

REPORT INFORMATION
  Report Type: 
  Country: None (occurrence: None)
  Receive Date: 20040903
  Receipt Date: 20040903
  Transmission Date: 20050211
  Serious: Yes (Other)
  Sender: FDA-Public Use
  Company Number: None

PATIENT
  Sex: Female
  Weight: 74.8435 kg

DRUGS (4)
  1. ALPRAZOLAM [Suspect]
     Indication: ANXIETY DISORDER
     Dosage: 0.5 MG TID PRN
     Dates: start: 20040801, end: 20040901
  2. ALPRAZOLAM [Suspect]
     Indication: ANXIETY DISORDER
     Dosage: 0.5 MG TID PRN
     Dates: start: 20040606, end: 20040801
  3. WELLBUTRIN XL [Concomitant]
  4. PAXIL [Concomitant]

REACTIONS (6)
  - DRUG EFFECT DECREASED [None]
  - MEDICATION ERROR [None]
  - NAUSEA [None]
  - PHARMACEUTICAL PRODUCT COMPLAINT [None]
  - RETCHING [None]
  - SEDATION [None]
